FAERS Safety Report 7031464-5 (Version None)
Quarter: 2010Q4

REPORT INFORMATION
  Report Type: 
  Country: None (occurrence: None)
  Receive Date: 20101006
  Receipt Date: 20100927
  Transmission Date: 20110411
  Serious: Yes (Hospitalization, Other)
  Sender: FDA-Public Use
  Company Number: HR-PFIZER INC-2010122265

PATIENT
  Age: 60 Year
  Sex: Female

DRUGS (4)
  1. SORTIS [Suspect]
     Indication: PROPHYLAXIS
     Dosage: 10 MG, 1X/DAY
     Route: 048
     Dates: start: 20060101, end: 20100510
  2. CARVEDILOL [Concomitant]
     Indication: HYPERTENSION
     Dosage: 12.5 MG, 2X/DAY
     Dates: start: 20060101
  3. CLOPIDOGREL [Concomitant]
     Indication: PROPHYLAXIS
     Dosage: UNK
     Dates: start: 20060101
  4. TRITACE [Concomitant]
     Indication: HYPERTENSION
     Dosage: 5 MG, 1X/DAY
     Dates: start: 20060101

REACTIONS (6)
  - MUSCLE SPASMS [None]
  - NEURALGIA [None]
  - PARAESTHESIA [None]
  - PRURITUS GENERALISED [None]
  - WALKING DISABILITY [None]
  - WEIGHT DECREASED [None]
